FAERS Safety Report 6937487-6 (Version None)
Quarter: 2010Q3

REPORT INFORMATION
  Report Type: 
  Country: None (occurrence: None)
  Receive Date: 20100823
  Receipt Date: 20100823
  Transmission Date: 20110219
  Serious: Yes (Hospitalization)
  Sender: FDA-Public Use
  Company Number: None

PATIENT
  Age: 69 Year
  Sex: Male

DRUGS (10)
  1. ASPIRIN [Suspect]
     Indication: ISCHAEMIC HEART DISEASE PROPHYLAXIS
     Dosage: 81 MG DAILY PO
     Route: 048
  2. MELOXICAM [Suspect]
     Indication: ARTHRALGIA
     Dosage: 7.5MG DAILY PO
     Route: 048
  3. ARICEPT [Concomitant]
  4. GLUCOPHAGE [Concomitant]
  5. NAMENDA [Concomitant]
  6. SEROQUEL [Concomitant]
  7. PROVENTIL [Concomitant]
  8. CELEXA [Concomitant]
  9. SIMVASTATIN [Concomitant]
  10. PERCOCET [Concomitant]

REACTIONS (2)
  - GASTRITIS [None]
  - HAEMATEMESIS [None]
